FAERS Safety Report 5563577-9 (Version None)
Quarter: 2007Q4

REPORT INFORMATION
  Report Type: 
  Country: None (occurrence: None)
  Receive Date: 20071217
  Receipt Date: 20070709
  Transmission Date: 20080405
  Serious: No
  Sender: FDA-Public Use
  Company Number: US-ASTRAZENECA-2007UW16053

PATIENT
  Age: 75 Year
  Sex: Male
  Weight: 93.9 kg

DRUGS (3)
  1. CRESTOR [Suspect]
     Indication: BLOOD CHOLESTEROL INCREASED
     Route: 048
     Dates: start: 20070705
  2. DIABETES PILLS [Concomitant]
  3. THYROID TAB [Concomitant]

REACTIONS (2)
  - INFLUENZA LIKE ILLNESS [None]
  - PYREXIA [None]
